FAERS Safety Report 6147968-3 (Version None)
Quarter: 2009Q2

REPORT INFORMATION
  Report Type: 
  Country: None (occurrence: None)
  Receive Date: 20090408
  Receipt Date: 20090309
  Transmission Date: 20091009
  Serious: No
  Sender: FDA-Public Use
  Company Number: US-BAYER-200826657NA

PATIENT
  Age: 24 Year
  Sex: Female
  Weight: 102 kg

DRUGS (2)
  1. MIRENA [Suspect]
     Indication: CONTRACEPTION
     Dosage: 20 MCG/DAY CONTINUOUS
     Route: 015
     Dates: start: 20070823
  2. TOPICAL VAGINAL CREAM [Concomitant]
     Indication: INFECTION
     Route: 061
     Dates: start: 20080401, end: 20080401

REACTIONS (2)
  - PREGNANCY TEST URINE NEGATIVE [None]
  - PREGNANCY TEST URINE POSITIVE [None]
